FAERS Safety Report 24454942 (Version 2)
Quarter: 2024Q4

REPORT INFORMATION
  Report Type: Report from Study
  Country: JP (occurrence: JP)
  Receive Date: 20241017
  Receipt Date: 20241018
  Transmission Date: 20250115
  Serious: No
  Sender: ROCHE
  Company Number: JP-ROCHE-3481305

PATIENT
  Age: 63 Year
  Sex: Female
  Weight: 48.0 kg

DRUGS (3)
  1. RITUXAN [Suspect]
     Active Substance: RITUXIMAB
     Indication: Systemic scleroderma
     Dosage: ON 31/ MAY/2023, RECEIVED THE SECOND DOSE OF THE FIRST CYCLE OF RITUXIMAB (375 MG/M2), ON 07/JUN//20
     Route: 041
     Dates: start: 20230524, end: 20230524
  2. OFEV [Concomitant]
     Active Substance: NINTEDANIB
     Route: 048
  3. OPSUMIT [Concomitant]
     Active Substance: MACITENTAN
     Route: 048
     Dates: start: 20230111

REACTIONS (1)
  - Infusion related reaction [Recovered/Resolved]

NARRATIVE: CASE EVENT DATE: 20230524
